FAERS Safety Report 6891023 (Version 2)
Quarter: 2015Q3

REPORT INFORMATION
  Report Type: Spontaneous
  Country: AU (occurrence: AU)
  Receive Date: 20090123
  Receipt Date: 20150903
  Transmission Date: 20151125
  Serious: Yes (Life-Threatening, Other)
  Sender: FDA-Public Use
  Company Number: AU-PFIZER INC-2009157259

PATIENT
  Age: 44 Year
  Sex: Male

DRUGS (1)
  1. CHAMPIX [Suspect]
     Active Substance: VARENICLINE TARTRATE
     Indication: TOBACCO USER
     Dosage: 2 MG, DAILY
     Route: 048
     Dates: start: 20080909, end: 20081020

REACTIONS (3)
  - Intentional overdose [Not Recovered/Not Resolved]
  - Coma [Not Recovered/Not Resolved]
  - Suicide attempt [Not Recovered/Not Resolved]
